FAERS Safety Report 16423970 (Version 1)
Quarter: 2019Q2

REPORT INFORMATION
  Report Type: Spontaneous
  Country: DE (occurrence: DE)
  Receive Date: 20190613
  Receipt Date: 20190613
  Transmission Date: 20190711
  Serious: Yes (Other)
  Sender: FDA-Public Use
  Company Number: DE-AUROBINDO-AUR-APL-2019-033093

PATIENT

DRUGS (18)
  1. FOLINIC ACID [Suspect]
     Active Substance: LEUCOVORIN
     Indication: COLORECTAL CANCER METASTATIC
     Dosage: 760 MILLIGRAM
     Route: 065
     Dates: start: 20190402
  2. PANTOPRAZOLE [Concomitant]
     Active Substance: PANTOPRAZOLE
     Indication: PROPHYLAXIS
     Dosage: 40 MILLIGRAM, DAILY (DOSAGE TEXT:40 MILLIGRAM, QD)
     Route: 048
  3. MINOCYCLINE [Concomitant]
     Active Substance: MINOCYCLINE\MINOCYCLINE HYDROCHLORIDE
     Indication: PROPHYLAXIS
     Dosage: 50 MILLIGRAM, DAILY (DOSAGE TEXT:50 MILLIGRAM, QD)
     Route: 048
     Dates: start: 20190402
  4. NOVAMINSULFON [Concomitant]
     Active Substance: METAMIZOLE
     Indication: PAIN
     Dosage: 500 MILLIGRAM, AS NECESSARY
     Route: 048
  5. BISOPROLOL [Concomitant]
     Active Substance: BISOPROLOL
     Indication: HYPERTENSION
     Dosage: 2.5 MILLIGRAM, DAILY (DOSAGE TEXT:2.5 MILLIGRAM, QD)
     Route: 048
  6. AKYNZEO [Concomitant]
     Active Substance: NETUPITANT\PALONOSETRON HYDROCHLORIDE
     Indication: PROPHYLAXIS
     Dosage: 300 MILLIGRAM, PER CYCLE
     Route: 048
     Dates: start: 20190402
  7. VECTIBIX [Suspect]
     Active Substance: PANITUMUMAB
     Indication: COLORECTAL CANCER METASTATIC
     Dosage: 550 MILLIGRAM
     Route: 042
     Dates: start: 20190402
  8. LACTULOSE. [Concomitant]
     Active Substance: LACTULOSE
     Indication: CONSTIPATION
     Dosage: 20 MILLILITER, DAILY (DOSAGE TEXT:20 MILLILITER, QD)
     Route: 048
  9. ATORVASTATIN [Concomitant]
     Active Substance: ATORVASTATIN
     Indication: HYPERCHOLESTEROLAEMIA
     Dosage: 40 MILLIGRAM, DAILY (DOSAGE TEXT:40 MILLIGRAM,QD)
     Route: 048
  10. DEKRISTOL [Concomitant]
     Active Substance: CHOLECALCIFEROL
     Indication: PROPHYLAXIS
     Dosage: 0.5 MILLIGRAM
     Route: 048
  11. OXALIPLATIN. [Suspect]
     Active Substance: OXALIPLATIN
     Indication: COLORECTAL CANCER METASTATIC
     Dosage: 160 MILLIGRAM
     Route: 065
     Dates: start: 20190402
  12. PALEXIA [Concomitant]
     Active Substance: TAPENTADOL HYDROCHLORIDE
     Indication: SPINAL STENOSIS
     Dosage: 200 MILLIGRAM, DAILY (DOSAGE TEXT:100 MILLIGRAM, BID)
     Route: 048
  13. TAVEGIL [Concomitant]
     Active Substance: CLEMASTINE FUMARATE
     Indication: PROPHYLAXIS
     Dosage: 2 MILLILITER, PER CYCLE
     Route: 042
     Dates: start: 20190402
  14. FLUOROURACIL. [Suspect]
     Active Substance: FLUOROURACIL
     Indication: COLORECTAL CANCER METASTATIC
     Dosage: 760 MILLIGRAM
     Route: 040
     Dates: start: 20190402
  15. FLUOROURACIL. [Suspect]
     Active Substance: FLUOROURACIL
     Dosage: 4560 MILLIGRAM
     Route: 042
     Dates: start: 20190402
  16. VALSARTAN. [Concomitant]
     Active Substance: VALSARTAN
     Indication: HYPERTENSION
     Dosage: 80 MILLIGRAM, DAILY (DOSAGE TEXT:80 MILLIGRAM, QD)
     Route: 048
  17. DEXAMETHASON [Concomitant]
     Active Substance: DEXAMETHASONE
     Indication: PROPHYLAXIS
     Dosage: 8 MILLIGRAM, PER CYCLE
     Route: 042
     Dates: start: 20190402
  18. TAGAMED [Concomitant]
     Indication: PROPHYLAXIS
     Dosage: 2 MILLILITER, PER CYCLE
     Route: 042
     Dates: start: 20190402

REACTIONS (8)
  - Intertrigo [Not Recovered/Not Resolved]
  - Hypomagnesaemia [Not Recovered/Not Resolved]
  - Stomatitis [Not Recovered/Not Resolved]
  - Diarrhoea [Not Recovered/Not Resolved]
  - Neutropenia [Recovered/Resolved]
  - Leukopenia [Recovered/Resolved]
  - Abdominal pain [Not Recovered/Not Resolved]
  - Nausea [Not Recovered/Not Resolved]

NARRATIVE: CASE EVENT DATE: 20190409
